FAERS Safety Report 7921349-1 (Version None)
Quarter: 2011Q4

REPORT INFORMATION
  Report Type: 
  Country: None (occurrence: None)
  Receive Date: 20111117
  Receipt Date: 20111115
  Transmission Date: 20120403
  Serious: No
  Sender: FDA-Public Use
  Company Number: US-TEVA-309568USA

PATIENT
  Sex: Female
  Weight: 136.2 kg

DRUGS (3)
  1. PLAN B ONE-STEP [Suspect]
     Indication: POST COITAL CONTRACEPTION
     Dosage: 1.5 MILLIGRAM;
     Route: 048
     Dates: start: 20111111, end: 20111111
  2. ATIVAN [Concomitant]
     Indication: ANXIETY
  3. NEOCON [Concomitant]
     Indication: CONTRACEPTION

REACTIONS (1)
  - MIGRAINE [None]
